FAERS Safety Report 8843032 (Version 1)
Quarter: 2012Q4

REPORT INFORMATION
  Report Type: 
  Country: US (occurrence: US)
  Receive Date: 20121016
  Receipt Date: 20121016
  Transmission Date: 20130627
  Serious: Yes (Death, Hospitalization)
  Sender: FDA-Public Use
  Company Number: US-GLAXOSMITHKLINE-A0996684A

PATIENT
  Age: 59 Year
  Sex: Female

DRUGS (2)
  1. ARIXTRA [Suspect]
     Indication: THROMBOSIS
     Dosage: .8MG Per day
     Route: 042
     Dates: start: 201208
  2. UNSPECIFIED MEDICATIONS [Concomitant]

REACTIONS (1)
  - Infection [Fatal]
